FAERS Safety Report 5493128-9 (Version None)
Quarter: 2007Q4

REPORT INFORMATION
  Report Type: 
  Country: None (occurrence: None)
  Receive Date: 20071023
  Receipt Date: 20071016
  Transmission Date: 20080405
  Serious: Yes (Disabling)
  Sender: FDA-Public Use
  Company Number: DE-SANOFI-SYNTHELABO-A04200701448

PATIENT
  Sex: Male
  Weight: 100 kg

DRUGS (6)
  1. FLUOROURACIL [Interacting]
     Indication: RECTAL CANCER
     Route: 041
     Dates: start: 20070801
  2. ELOXATIN [Suspect]
     Indication: RECTAL CANCER
     Route: 041
     Dates: start: 20070801, end: 20070801
  3. ALCOHOL [Interacting]
     Indication: DRUG USE FOR UNKNOWN INDICATION
     Dosage: 1 GLASS OF STRONG BEER
     Route: 048
  4. DEXAMETHASONE 0.5MG TAB [Concomitant]
     Indication: DRUG USE FOR UNKNOWN INDICATION
     Route: 042
     Dates: start: 20070801, end: 20070101
  5. GRANISETRON  HCL [Concomitant]
     Indication: DRUG USE FOR UNKNOWN INDICATION
     Route: 042
     Dates: start: 20070801, end: 20070101
  6. CALCIUM FOLINATE [Interacting]
     Indication: RECTAL CANCER
     Route: 040
     Dates: start: 20070801

REACTIONS (3)
  - ALCOHOL INTERACTION [None]
  - FALL [None]
  - LOWER LIMB FRACTURE [None]
